FAERS Safety Report 20366221 (Version 1)
Quarter: 2022Q1

REPORT INFORMATION
  Report Type: Other
  Country: US (occurrence: US)
  Receive Date: 20220123
  Receipt Date: 20220123
  Transmission Date: 20220423
  Serious: Yes (Hospitalization)
  Sender: FDA-Public Use
  Company Number: US-BIOGEN-2021BI00999108

PATIENT
  Sex: Female
  Weight: 54.48 kg

DRUGS (7)
  1. AMPYRA [Suspect]
     Active Substance: DALFAMPRIDINE
     Indication: Paraparesis
     Dosage: 10 MILLIGRAM, BID
     Route: 048
  2. TECFIDERA [Suspect]
     Active Substance: DIMETHYL FUMARATE
     Indication: Multiple sclerosis
     Dosage: 120 MILLIGRAM, BID (STARTING DOSE)
     Route: 048
  3. TECFIDERA [Suspect]
     Active Substance: DIMETHYL FUMARATE
     Dosage: 240 MILLIGRAM, BID (MAINTENANCE DOSE)
     Route: 048
  4. EXELON [Suspect]
     Active Substance: RIVASTIGMINE TARTRATE
     Indication: Cognitive disorder
     Dosage: 9.5 MILLIGRAM, QD (TRANSDERMAL PATCH)
     Route: 062
  5. GABAPENTIN [Concomitant]
     Active Substance: GABAPENTIN
     Indication: Neuralgia
     Dosage: 300 MILLIGRAM, BID
     Route: 065
  6. SERTRALINE [Concomitant]
     Active Substance: SERTRALINE HYDROCHLORIDE
     Indication: Anxiety
     Dosage: 50 MILLIGRAM, QD
     Route: 065
  7. NAMENDA XR [Concomitant]
     Active Substance: MEMANTINE HYDROCHLORIDE
     Indication: Cognitive disorder
     Dosage: 28 MILLIGRAM, QD
     Route: 065

REACTIONS (3)
  - Urinary tract infection [Recovered/Resolved]
  - Urinary retention [Unknown]
  - Off label use [Unknown]

NARRATIVE: CASE EVENT DATE: 20190101
